FAERS Safety Report 9671181 (Version 3)
Quarter: 2020Q3

REPORT INFORMATION
  Report Type: Report from Study
  Country: None (occurrence: JP)
  Receive Date: 20131106
  Receipt Date: 20200903
  Transmission Date: 20201103
  Serious: Yes (Death, Other)
  Sender: FDA-Public Use
  Company Number: JP-ASTELLAS-2013US011536

PATIENT

DRUGS (2)
  1. ERLOTINIB [Suspect]
     Active Substance: ERLOTINIB
     Indication: NON-SMALL CELL LUNG CANCER
     Dosage: UNK, UNKNOWN FREQ.
     Route: 048
  2. TS?1 [Suspect]
     Active Substance: GIMERACIL\OTERACIL\TEGAFUR
     Indication: NON-SMALL CELL LUNG CANCER
     Dosage: 80 MG, TWICE DAILY AFTER MEALS FOR 2 WEEKS IN A 3?WEEK CYCLE.
     Route: 048

REACTIONS (4)
  - Colitis [Unknown]
  - Diarrhoea [Unknown]
  - Gastroenteritis bacterial [Unknown]
  - Septic shock [Fatal]
